FAERS Safety Report 24100372 (Version 5)
Quarter: 2025Q3

REPORT INFORMATION
  Report Type: Report from Study
  Country: US (occurrence: US)
  Receive Date: 20240717
  Receipt Date: 20250909
  Transmission Date: 20251021
  Serious: Yes (Hospitalization)
  Sender: ABBVIE
  Company Number: US-ABBVIE-5839382

PATIENT
  Age: 54 Year
  Sex: Male

DRUGS (3)
  1. SKYRIZI [Suspect]
     Active Substance: RISANKIZUMAB-RZAA
     Indication: Psoriasis
     Route: 058
  2. SKYRIZI [Suspect]
     Active Substance: RISANKIZUMAB-RZAA
     Dosage: 150MG/ML, INJECT 1 INJECTOR SUBCUTANEOUSLY EVERY 12 WEEKS
     Route: 058
     Dates: start: 20231226
  3. SKYRIZI [Suspect]
     Active Substance: RISANKIZUMAB-RZAA
     Route: 058
     Dates: start: 20240601

REACTIONS (11)
  - Atrial fibrillation [Unknown]
  - Eye swelling [Unknown]
  - Lung disorder [Unknown]
  - Paraesthesia [Unknown]
  - Psoriasis [Unknown]
  - Hip arthroplasty [Unknown]
  - Rash [Unknown]
  - Swelling of nose [Unknown]
  - Swelling face [Unknown]
  - Hyperhidrosis [Unknown]
  - Sensitive skin [Unknown]

NARRATIVE: CASE EVENT DATE: 20240624
